FAERS Safety Report 13573568 (Version 2)
Quarter: 2018Q2

REPORT INFORMATION
  Report Type: Spontaneous
  Country: JP (occurrence: JP)
  Receive Date: 20170523
  Receipt Date: 20180521
  Transmission Date: 20180711
  Serious: No
  Sender: FDA-Public Use
  Company Number: JP-009507513-1705JPN000003J

PATIENT
  Sex: Male
  Weight: 53 kg

DRUGS (2)
  1. CANCIDAS [Suspect]
     Active Substance: CASPOFUNGIN ACETATE
     Indication: ASPERGILLOMA
     Dosage: 70 MG, QD
     Route: 041
     Dates: start: 20160513, end: 20160513
  2. CANCIDAS [Suspect]
     Active Substance: CASPOFUNGIN ACETATE
     Indication: ASPERGILLOMA
     Dosage: 50 MG, QD
     Route: 041
     Dates: start: 20160514, end: 20160526

REACTIONS (1)
  - Drug ineffective [Unknown]
